FAERS Safety Report 8606542-7 (Version None)
Quarter: 2012Q3

REPORT INFORMATION
  Report Type: 
  Country: None (occurrence: None)
  Receive Date: 20120629
  Receipt Date: 20120629
  Transmission Date: 20120928
  Serious: Yes (Life-Threatening)
  Sender: FDA-Public Use
  Company Number: None

PATIENT
  Age: 44 Year
  Sex: Female
  Weight: 58.9676 kg

DRUGS (2)
  1. CURVA SUPPLEMENT [Concomitant]
  2. CURVA 1000 % OF DAILY ALLOWANCE - 200MG ERCHONIA CORPORATION [Suspect]
     Indication: BODY FAT DISORDER
     Dosage: 1 PILL BID PO
     Route: 048
     Dates: start: 20120624, end: 20120624

REACTIONS (5)
  - BALANCE DISORDER [None]
  - FALL [None]
  - HEART RATE IRREGULAR [None]
  - ERYTHEMA [None]
  - DIZZINESS [None]
